FAERS Safety Report 12124194 (Version 1)
Quarter: 2016Q1

REPORT INFORMATION
  Report Type: Spontaneous
  Country: CA (occurrence: CA)
  Receive Date: 20160228
  Receipt Date: 20160228
  Transmission Date: 20160526
  Serious: Yes (Other)
  Sender: FDA-Public Use
  Company Number: CA-TEVA-637950ACC

PATIENT
  Sex: Female

DRUGS (4)
  1. ABILIFY [Suspect]
     Active Substance: ARIPIPRAZOLE
     Indication: BIPOLAR DISORDER
     Dosage: 15 MILLIGRAM DAILY;
     Route: 048
  2. SYNTHROID [Concomitant]
     Active Substance: LEVOTHYROXINE SODIUM
  3. LAMICTAL [Suspect]
     Active Substance: LAMOTRIGINE
     Indication: BIPOLAR DISORDER
     Dosage: 250 MILLIGRAM DAILY;
     Route: 048
  4. SERTRALINE [Suspect]
     Active Substance: SERTRALINE HYDROCHLORIDE
     Indication: BIPOLAR DISORDER
     Dosage: 100 MILLIGRAM DAILY;
     Route: 048

REACTIONS (1)
  - Suppressed lactation [Recovered/Resolved]
